FAERS Safety Report 16799831 (Version 1)
Quarter: 2019Q3

REPORT INFORMATION
  Report Type: Spontaneous
  Country: US (occurrence: US)
  Receive Date: 20190723
  Receipt Date: 20190723
  Transmission Date: 20191005
  Serious: Yes (Other)
  Sender: FDA-Public Use
  Company Number: None

PATIENT
  Age: 15 Year
  Sex: Female
  Weight: 33.29 kg

DRUGS (3)
  1. LAMICTAL [Concomitant]
     Active Substance: LAMOTRIGINE
  2. ONFI [Concomitant]
     Active Substance: CLOBAZAM
  3. PURIFIED CBD (CANNABIDLOL) ORA SOLUTION [Suspect]
     Active Substance: CANNABIDIOL\HERBALS
     Indication: EPILEPSY
     Dosage: 832.5 MG ORALLY DAILY
     Route: 048
     Dates: start: 20180626, end: 20180921

REACTIONS (3)
  - Leukopenia [None]
  - Cellulitis [None]
  - Neutropenia [None]

NARRATIVE: CASE EVENT DATE: 20180808
